FAERS Safety Report 18089665 (Version 2)
Quarter: 2020Q4

REPORT INFORMATION
  Report Type: Report from Study
  Country: ES (occurrence: ES)
  Receive Date: 20200729
  Receipt Date: 20201005
  Transmission Date: 20210113
  Serious: Yes (Other)
  Sender: FDA-Public Use
  Company Number: ES-NEUROCRINE BIOSCIENCES INC.-2020NBI02671

PATIENT
  Age: 49 Year
  Sex: Female

DRUGS (7)
  1. XADAGO [Suspect]
     Active Substance: SAFINAMIDE MESYLATE
     Indication: ON AND OFF PHENOMENON
     Dosage: UNKNOWN
     Route: 065
  2. ONGENTYS [Suspect]
     Active Substance: OPICAPONE
     Indication: ON AND OFF PHENOMENON
     Dosage: UNKNOWN
     Route: 065
  3. LEVODOPA [Suspect]
     Active Substance: LEVODOPA
     Indication: ON AND OFF PHENOMENON
     Dosage: 300 (NO UNIT PROVIDED), UNKNOWN
     Route: 065
  4. SINEMET [Suspect]
     Active Substance: CARBIDOPA\LEVODOPA
     Indication: ON AND OFF PHENOMENON
     Dosage: UNKNOWN
     Route: 065
  5. MIRAPEX [Suspect]
     Active Substance: PRAMIPEXOLE DIHYDROCHLORIDE
     Indication: ON AND OFF PHENOMENON
     Dosage: UNKNOWN
     Route: 065
  6. MIRAPEXIN [Suspect]
     Active Substance: PRAMIPEXOLE
     Indication: ON AND OFF PHENOMENON
     Dosage: UNKNOWN
     Route: 065
  7. AMANTADINE. [Suspect]
     Active Substance: AMANTADINE HYDROCHLORIDE
     Indication: ON AND OFF PHENOMENON
     Dosage: UNKNOWN
     Route: 065

REACTIONS (10)
  - Dystonia [Unknown]
  - Bradykinesia [Unknown]
  - Anosmia [Unknown]
  - Anxiety [Unknown]
  - Muscle rigidity [Unknown]
  - Constipation [Unknown]
  - Reduced facial expression [Unknown]
  - Therapeutic response shortened [Unknown]
  - Pain [Unknown]
  - Depression [Unknown]
